FAERS Safety Report 4811775-1 (Version None)
Quarter: 2005Q4

REPORT INFORMATION
  Report Type: 
  Country: None (occurrence: None)
  Receive Date: 20051028
  Receipt Date: 20051005
  Transmission Date: 20060501
  Serious: Yes (Other)
  Sender: FDA-Public Use
  Company Number: PHBS2005JP14636

PATIENT

DRUGS (1)
  1. VOLTAREN [Suspect]
     Route: 054
     Dates: start: 20050101, end: 20050101

REACTIONS (2)
  - DEAFNESS [None]
  - TINNITUS [None]
